FAERS Safety Report 14299778 (Version 1)
Quarter: 2017Q4

REPORT INFORMATION
  Report Type: Spontaneous
  Country: FR (occurrence: FR)
  Receive Date: 20171219
  Receipt Date: 20171219
  Transmission Date: 20180321
  Serious: Yes (Other)
  Sender: FDA-Public Use
  Company Number: FR-MERCK KGAA-2037359

PATIENT
  Age: 59 Year
  Sex: Male

DRUGS (1)
  1. NOVOTHYROX [Suspect]
     Active Substance: LEVOTHYROXINE SODIUM
     Indication: PRODUCT USED FOR UNKNOWN INDICATION

REACTIONS (12)
  - Blood pressure increased [None]
  - Headache [None]
  - Anxiety [None]
  - Irritability [None]
  - Mood altered [None]
  - Depressed mood [None]
  - Depression [None]
  - Social avoidant behaviour [None]
  - Blindness [None]
  - Amnesia [None]
  - Dizziness [None]
  - Fatigue [None]

NARRATIVE: CASE EVENT DATE: 201707
